FAERS Safety Report 5608841-X (Version None)
Quarter: 2008Q1

REPORT INFORMATION
  Report Type: 
  Country: None (occurrence: None)
  Receive Date: 20080131
  Receipt Date: 20080125
  Transmission Date: 20080703
  Serious: Yes (Other)
  Sender: FDA-Public Use
  Company Number: GB-JNJFOC-20080106452

PATIENT
  Sex: Female
  Weight: 100 kg

DRUGS (8)
  1. REMICADE [Suspect]
     Indication: RHEUMATOID ARTHRITIS
     Route: 042
  2. RANITIDINE [Concomitant]
  3. METHOTREXATE [Concomitant]
  4. PREDNISOLONE [Concomitant]
  5. AMITRIPTYLINE HCL [Concomitant]
  6. NABUMETONE [Concomitant]
  7. PARACETAMOL [Concomitant]
  8. PLAQUENIL [Concomitant]

REACTIONS (1)
  - EXTRANODAL MARGINAL ZONE B-CELL LYMPHOMA (MALT TYPE) [None]
